FAERS Safety Report 8243798-7 (Version None)
Quarter: 2012Q1

REPORT INFORMATION
  Report Type: 
  Country: None (occurrence: None)
  Receive Date: 20120329
  Receipt Date: 20120103
  Transmission Date: 20120608
  Serious: No
  Sender: FDA-Public Use
  Company Number: US-MYLANLABS-2011S1024109

PATIENT
  Sex: Male

DRUGS (6)
  1. EMSAM [Suspect]
     Dates: start: 20110101, end: 20110101
  2. EMSAM [Suspect]
     Indication: DEPRESSION
     Dates: start: 20111001, end: 20110101
  3. EMSAM [Suspect]
     Indication: ANXIETY
     Dates: start: 20111001, end: 20110101
  4. EMSAM [Suspect]
     Dates: start: 20110101, end: 20110101
  5. EMSAM [Suspect]
     Dates: start: 20110101, end: 20110101
  6. EMSAM [Suspect]
     Dates: start: 20110101, end: 20110101

REACTIONS (1)
  - WEIGHT INCREASED [None]
